FAERS Safety Report 7217253-7 (Version None)
Quarter: 2011Q1

REPORT INFORMATION
  Report Type: 
  Country: None (occurrence: None)
  Receive Date: 20110110
  Receipt Date: 20110104
  Transmission Date: 20110831
  Serious: Yes (Hospitalization, Other)
  Sender: FDA-Public Use
  Company Number: AU-US-EMD SERONO, INC.-7034452

PATIENT
  Sex: Female

DRUGS (2)
  1. REBIF [Suspect]
     Indication: MULTIPLE SCLEROSIS
     Route: 058
     Dates: start: 20060327, end: 20101201
  2. REBIF [Suspect]
     Route: 058
     Dates: start: 20101201, end: 20110103

REACTIONS (2)
  - SKIN INFECTION [None]
  - SURGERY [None]
